FAERS Safety Report 21700326 (Version 3)
Quarter: 2022Q4

REPORT INFORMATION
  Report Type: Spontaneous
  Country: CA (occurrence: CA)
  Receive Date: 20221208
  Receipt Date: 20221222
  Transmission Date: 20230113
  Serious: Yes (Other)
  Sender: FDA-Public Use
  Company Number: CA-PFIZER INC-PV202200063650

PATIENT
  Age: 69 Year
  Sex: Female

DRUGS (7)
  1. RUXIENCE [Suspect]
     Active Substance: RITUXIMAB-PVVR
     Indication: Splenic marginal zone lymphoma
     Dosage: 375 MG/M2 (600MG), WEEKLY 4 DOSES
     Route: 042
  2. RUXIENCE [Suspect]
     Active Substance: RITUXIMAB-PVVR
     Dosage: 600 MG
     Route: 042
  3. RUXIENCE [Suspect]
     Active Substance: RITUXIMAB-PVVR
     Dosage: 600 MG
     Route: 042
  4. RUXIENCE [Suspect]
     Active Substance: RITUXIMAB-PVVR
     Dosage: 600 MG
     Route: 042
  5. RUXIENCE [Suspect]
     Active Substance: RITUXIMAB-PVVR
     Dosage: 600 MG
     Route: 042
  6. RUXIENCE [Suspect]
     Active Substance: RITUXIMAB-PVVR
     Dosage: 600 MG
     Route: 042
  7. RUXIENCE [Suspect]
     Active Substance: RITUXIMAB-PVVR
     Dosage: 600 MG
     Route: 042

REACTIONS (11)
  - Sinusitis bacterial [Unknown]
  - Blood pressure decreased [Unknown]
  - Abdominal pain lower [Unknown]
  - Dizziness [Unknown]
  - Pallor [Unknown]
  - Headache [Unknown]
  - Nasopharyngitis [Unknown]
  - Blood pressure fluctuation [Unknown]
  - Headache [Unknown]
  - Back pain [Unknown]
  - Chills [Unknown]

NARRATIVE: CASE EVENT DATE: 20220101
